FAERS Safety Report 24958793 (Version 1)
Quarter: 2025Q1

REPORT INFORMATION
  Report Type: Spontaneous
  Country: PL (occurrence: PL)
  Receive Date: 20250212
  Receipt Date: 20250212
  Transmission Date: 20250409
  Serious: Yes (Other)
  Sender: ABBVIE
  Company Number: PL-SYNOPTIS-031-L-0001

PATIENT
  Age: 78 Year
  Sex: Female

DRUGS (6)
  1. BIMATOPROST [Suspect]
     Active Substance: BIMATOPROST
     Indication: Glaucoma
     Route: 065
  2. DORZOLAMIDE\TIMOLOL [Suspect]
     Active Substance: DORZOLAMIDE\TIMOLOL
     Indication: Glaucoma
     Route: 065
  3. ACETAZOLAMIDE [Concomitant]
     Active Substance: ACETAZOLAMIDE
     Indication: Intraocular pressure increased
     Route: 048
  4. ACETAZOLAMIDE [Concomitant]
     Active Substance: ACETAZOLAMIDE
     Indication: Intraocular pressure increased
     Dosage: TWICE DAILY
     Route: 048
  5. LATANOPROST [Suspect]
     Active Substance: LATANOPROST
     Indication: Glaucoma
     Route: 065
  6. POTASSIUM CHLORIDE [Concomitant]
     Active Substance: POTASSIUM CHLORIDE
     Indication: Intraocular pressure increased

REACTIONS (18)
  - Retinal degeneration [Unknown]
  - Ocular surface disease [Recovering/Resolving]
  - Hypersensitivity [Recovering/Resolving]
  - Blepharitis [Recovering/Resolving]
  - Dermatitis allergic [Recovering/Resolving]
  - Eyelid pain [Recovering/Resolving]
  - Vitreous floaters [Unknown]
  - Eye pruritus [Recovering/Resolving]
  - Photophobia [Recovering/Resolving]
  - Visual acuity reduced [Recovering/Resolving]
  - Eye pain [Recovering/Resolving]
  - Punctate keratitis [Recovering/Resolving]
  - Lacrimation increased [Recovering/Resolving]
  - Erythema [Recovered/Resolved]
  - Intraocular pressure increased [Recovering/Resolving]
  - Conjunctival hyperaemia [Recovering/Resolving]
  - Meibomian gland dysfunction [Recovering/Resolving]
  - Skin swelling [Recovered/Resolved]
